FAERS Safety Report 21888129 (Version 1)
Quarter: 2023Q1

REPORT INFORMATION
  Report Type: Spontaneous
  Country: US (occurrence: US)
  Receive Date: 20230120
  Receipt Date: 20230120
  Transmission Date: 20230418
  Serious: No
  Sender: FDA-Public Use
  Company Number: US-ABBVIE-4263204

PATIENT
  Age: 65 Year
  Weight: 81.646 kg

DRUGS (4)
  1. LEVOTHYROXINE [Suspect]
     Active Substance: LEVOTHYROXINE
     Indication: Hypothyroidism
     Route: 048
  2. LEVOTHYROXINE [Suspect]
     Active Substance: LEVOTHYROXINE
     Indication: Hypothyroidism
     Route: 048
     Dates: start: 1992, end: 1998
  3. FENTANYL [Concomitant]
     Active Substance: FENTANYL
     Indication: Product used for unknown indication
     Route: 065
  4. EUTHYROX [Concomitant]
     Active Substance: LEVOTHYROXINE SODIUM
     Indication: Thyroid disorder
     Route: 065

REACTIONS (6)
  - Palpitations [Recovered/Resolved]
  - Muscle spasms [Recovered/Resolved]
  - Ulcer [Not Recovered/Not Resolved]
  - Musculoskeletal chest pain [Recovering/Resolving]
  - Back pain [Recovering/Resolving]
  - Formication [Recovered/Resolved]

NARRATIVE: CASE EVENT DATE: 20220408
